FAERS Safety Report 12128914 (Version 2)
Quarter: 2017Q1

REPORT INFORMATION
  Report Type: Other
  Country: US (occurrence: US)
  Receive Date: 20160229
  Receipt Date: 20170212
  Transmission Date: 20170428
  Serious: No
  Sender: FDA-Public Use
  Company Number: US-ACORDA-ACO_119358_2015

PATIENT
  Age: 60 Year
  Sex: Male

DRUGS (3)
  1. AMPYRA [Suspect]
     Active Substance: DALFAMPRIDINE
     Indication: MULTIPLE SCLEROSIS
     Dosage: 10 MG, BID
     Route: 048
     Dates: start: 20150707
  2. AMPYRA [Suspect]
     Active Substance: DALFAMPRIDINE
     Dosage: 10 MG, BID
     Route: 048
     Dates: start: 20151002
  3. RITUXIMAB [Suspect]
     Active Substance: RITUXIMAB
     Indication: PRODUCT USED FOR UNKNOWN INDICATION
     Dosage: UNK
     Route: 065

REACTIONS (9)
  - CD4 lymphocyte percentage decreased [Unknown]
  - Blood immunoglobulin A increased [Unknown]
  - T-lymphocyte count decreased [Unknown]
  - B-lymphocyte count decreased [Unknown]
  - CD4 lymphocytes decreased [Unknown]
  - CD4/CD8 ratio decreased [Unknown]
  - Haemoglobin decreased [Unknown]
  - Platelet count decreased [Unknown]
  - CD8 lymphocytes increased [Unknown]

NARRATIVE: CASE EVENT DATE: 20151029
